FAERS Safety Report 9115916 (Version 2)
Quarter: 2013Q1

REPORT INFORMATION
  Report Type: Spontaneous
  Country: US (occurrence: US)
  Receive Date: 20130225
  Receipt Date: 20130327
  Transmission Date: 20140127
  Serious: No
  Sender: FDA-Public Use
  Company Number: US-009507513-1302USA010576

PATIENT
  Age: 56 None
  Sex: Male
  Weight: 82.99 kg

DRUGS (1)
  1. AZASITE [Suspect]
     Dosage: ONE DROP IN EACH EYE FOUR TIMES A DAY FOR ONE WEEK
     Route: 047
     Dates: start: 20130212, end: 20130222

REACTIONS (2)
  - Inappropriate schedule of drug administration [Unknown]
  - No adverse event [Unknown]
